FAERS Safety Report 6259173-0 (Version None)
Quarter: 2009Q3

REPORT INFORMATION
  Report Type: 
  Country: None (occurrence: None)
  Receive Date: 20090707
  Receipt Date: 20090629
  Transmission Date: 20100115
  Serious: Yes (Hospitalization)
  Sender: FDA-Public Use
  Company Number: GB-AVENTIS-200718651GDDC

PATIENT

DRUGS (4)
  1. LANTUS [Suspect]
     Route: 058
  2. OPTICLIK (INSULIN INJECTION PEN) [Suspect]
  3. APIDRA [Suspect]
     Route: 058
  4. OPTICLIK (INSULIN INJECTION PEN) [Suspect]

REACTIONS (2)
  - DIABETIC KETOACIDOSIS [None]
  - DRUG DISPENSING ERROR [None]
